FAERS Safety Report 9095314 (Version 1)
Quarter: 2013Q1

REPORT INFORMATION
  Report Type: Spontaneous
  Country: US (occurrence: None)
  Receive Date: 20130122
  Receipt Date: 20130122
  Transmission Date: 20140127
  Serious: Yes (Hospitalization)
  Sender: FDA-Public Use
  Company Number: DSU-2013-00348

PATIENT
  Age: 55 Year
  Sex: Male
  Weight: 65 kg

DRUGS (3)
  1. OLMETEC ANLO [Suspect]
     Indication: HYPERTENSION
     Route: 048
     Dates: start: 201212
  2. PANCILON (INGREDIENTS UNKNOWN) [Concomitant]
     Indication: PROSTATIC DISORDER
  3. FLUX BIOLAB (INDAPAMIDE) (1.5 MILLIGRAMS) INDAPAMIDE) [Concomitant]
     Indication: HYPERTENSION

REACTIONS (2)
  - Urinary tract obstruction [None]
  - Prostatic operation [None]
